FAERS Safety Report 20362441 (Version 2)
Quarter: 2022Q1

REPORT INFORMATION
  Report Type: Spontaneous
  Country: US (occurrence: US)
  Receive Date: 20220121
  Receipt Date: 20220223
  Transmission Date: 20220423
  Serious: Yes (Life-Threatening, Other)
  Sender: FDA-Public Use
  Company Number: US-JNJFOC-20220124424

PATIENT
  Age: 61 Year
  Sex: Male
  Weight: 136.20 kg

DRUGS (2)
  1. SYMTUZA [Suspect]
     Active Substance: COBICISTAT\DARUNAVIR\EMTRICITABINE\TENOFOVIR ALAFENAMIDE
     Indication: HIV infection
     Route: 048
     Dates: start: 202107
  2. SYMTUZA [Suspect]
     Active Substance: COBICISTAT\DARUNAVIR\EMTRICITABINE\TENOFOVIR ALAFENAMIDE
     Indication: Hepatitis
     Route: 048
     Dates: start: 202202

REACTIONS (6)
  - Mechanical ventilation [Unknown]
  - Drug ineffective [Not Recovered/Not Resolved]
  - Hepatitis B [Recovered/Resolved]
  - Hepatitis C [Recovered/Resolved]
  - Diabetes mellitus [Recovered/Resolved]
  - Hepatitis A [Recovered/Resolved]

NARRATIVE: CASE EVENT DATE: 20210701
